FAERS Safety Report 17913182 (Version 2)
Quarter: 2020Q3

REPORT INFORMATION
  Report Type: Spontaneous
  Country: US (occurrence: US)
  Receive Date: 20200618
  Receipt Date: 20200904
  Transmission Date: 20201103
  Serious: No
  Sender: FDA-Public Use
  Company Number: US-PFIZER INC-2017063259

PATIENT
  Age: 9 Year
  Sex: Female
  Weight: 28.12 kg

DRUGS (8)
  1. GENOTROPIN [Suspect]
     Active Substance: SOMATROPIN
     Dosage: 1.2 MG, DAILY
     Dates: start: 20160320
  2. GENOTROPIN [Suspect]
     Active Substance: SOMATROPIN
     Indication: GROWTH FAILURE
     Dosage: 1.5 MG, UNK
     Dates: start: 201602
  3. GENOTROPIN [Suspect]
     Active Substance: SOMATROPIN
     Dosage: 1.6 MG, 1X/DAY (EACH EVENING)
     Route: 030
  4. GENOTROPIN [Suspect]
     Active Substance: SOMATROPIN
     Dosage: UNK
     Dates: end: 20170207
  5. GENOTROPIN [Suspect]
     Active Substance: SOMATROPIN
     Dosage: 2 MG, DAILY
     Dates: start: 201603
  6. GENOTROPIN [Suspect]
     Active Substance: SOMATROPIN
     Dosage: 1.7 MG, DAILY
  7. GENOTROPIN [Suspect]
     Active Substance: SOMATROPIN
     Dosage: UNK
     Dates: end: 20180511
  8. GENOTROPIN [Suspect]
     Active Substance: SOMATROPIN
     Indication: GROWTH HORMONE DEFICIENCY
     Dosage: UNK UNK, ALTERNATE DAY (1.0 AND 1.2 EVERY OTHER DAY)

REACTIONS (7)
  - Expired device used [Unknown]
  - Device issue [Unknown]
  - Skin odour abnormal [Unknown]
  - Off label use [Unknown]
  - Product dose omission issue [Unknown]
  - Product prescribing error [Unknown]
  - Product use issue [Unknown]

NARRATIVE: CASE EVENT DATE: 201602
